FAERS Safety Report 17723349 (Version 4)
Quarter: 2020Q2

REPORT INFORMATION
  Report Type: Report from Study
  Country: IN (occurrence: IN)
  Receive Date: 20200429
  Receipt Date: 20200603
  Transmission Date: 20200714
  Serious: Yes (Other)
  Sender: FDA-Public Use
  Company Number: NVSC2020IN108823

PATIENT
  Age: 41 Year
  Sex: Male
  Weight: 70 kg

DRUGS (2)
  1. GALVUS MET [Suspect]
     Active Substance: METFORMIN HYDROCHLORIDE\VILDAGLIPTIN
     Dosage: 1 DF, BID (50/1000)
     Route: 048
     Dates: start: 201810
  2. GALVUS MET [Suspect]
     Active Substance: METFORMIN HYDROCHLORIDE\VILDAGLIPTIN
     Indication: DIABETES MELLITUS
     Dosage: 1 DF, BID, DOSING (1-0-1),
     Route: 048
     Dates: start: 201809

REACTIONS (12)
  - Pyrexia [Unknown]
  - Pain [Unknown]
  - Waist circumference decreased [Unknown]
  - Weight decreased [Not Recovered/Not Resolved]
  - Underweight [Not Recovered/Not Resolved]
  - Hyperglycaemia [Not Recovered/Not Resolved]
  - Glycosylated haemoglobin increased [Unknown]
  - Asthenia [Unknown]
  - Muscle atrophy [Unknown]
  - Weight abnormal [Unknown]
  - Sleep disorder [Not Recovered/Not Resolved]
  - Body mass index increased [Unknown]

NARRATIVE: CASE EVENT DATE: 20200417
